FAERS Safety Report 8185545-3 (Version None)
Quarter: 2012Q1

REPORT INFORMATION
  Report Type: 
  Country: None (occurrence: None)
  Receive Date: 20120305
  Receipt Date: 20120222
  Transmission Date: 20120608
  Serious: Yes (Hospitalization)
  Sender: FDA-Public Use
  Company Number: US-ELI_LILLY_AND_COMPANY-US201202007401

PATIENT
  Sex: Female

DRUGS (5)
  1. WARFARIN SODIUM [Concomitant]
     Dosage: UNK
  2. METOPROLOL SUCCINATE [Concomitant]
     Dosage: UNK
  3. HUMALOG [Suspect]
     Indication: TYPE 2 DIABETES MELLITUS
     Dosage: UNK
  4. HUMALOG [Suspect]
     Dosage: UNK
  5. LEVEMIR [Concomitant]
     Dosage: UNK

REACTIONS (8)
  - STAPHYLOCOCCAL INFECTION [None]
  - BACK DISORDER [None]
  - FALL [None]
  - MUSCLE DISORDER [None]
  - INFLUENZA [None]
  - PNEUMONIA [None]
  - HIP FRACTURE [None]
  - GAIT DISTURBANCE [None]
